FAERS Safety Report 5424092-6 (Version None)
Quarter: 2007Q3

REPORT INFORMATION
  Report Type: 
  Country: None (occurrence: None)
  Receive Date: 20070823
  Receipt Date: 20070813
  Transmission Date: 20080115
  Serious: Yes (Hospitalization, Other)
  Sender: FDA-Public Use
  Company Number: US-PFIZER INC-2007004731

PATIENT
  Sex: Male
  Weight: 97.5 kg

DRUGS (2)
  1. CELEBREX [Suspect]
     Dates: start: 19990618, end: 20030115
  2. BEXTRA [Suspect]
     Indication: ARTHRITIS
     Dates: start: 20030212

REACTIONS (2)
  - CEREBROVASCULAR ACCIDENT [None]
  - TRANSIENT ISCHAEMIC ATTACK [None]
